FAERS Safety Report 15774077 (Version 1)
Quarter: 2018Q4

REPORT INFORMATION
  Report Type: Spontaneous
  Country: US (occurrence: US)
  Receive Date: 20181229
  Receipt Date: 20181229
  Transmission Date: 20190205
  Serious: Yes (Hospitalization, Other)
  Sender: FDA-Public Use
  Company Number: US-009507513-1812USA011234

PATIENT
  Age: 65 Year
  Sex: Male

DRUGS (1)
  1. ENTEREG [Suspect]
     Active Substance: ALVIMOPAN
     Indication: COLON OPERATION
     Dosage: UNK
     Route: 048
     Dates: start: 20160928

REACTIONS (9)
  - Hepatic failure [Not Recovered/Not Resolved]
  - Troponin increased [Not Recovered/Not Resolved]
  - Product use in unapproved indication [Unknown]
  - Pain [Not Recovered/Not Resolved]
  - Metabolic acidosis [Not Recovered/Not Resolved]
  - Anastomotic leak [Not Recovered/Not Resolved]
  - Coma [Not Recovered/Not Resolved]
  - Renal failure [Not Recovered/Not Resolved]
  - Abdominal distension [Not Recovered/Not Resolved]

NARRATIVE: CASE EVENT DATE: 20160928
